FAERS Safety Report 9795693 (Version 1)
Quarter: 2014Q1

REPORT INFORMATION
  Report Type: Spontaneous
  Country: US (occurrence: US)
  Receive Date: 20140103
  Receipt Date: 20140103
  Transmission Date: 20141002
  Serious: No
  Sender: FDA-Public Use
  Company Number: US-B.I. PHARMACEUTICALS,INC./RIDGEFIELD-2013-BI-43831BP

PATIENT
  Age: 59 Year
  Sex: Female
  Weight: 64 kg

DRUGS (5)
  1. SPIRIVA [Suspect]
     Indication: CHRONIC OBSTRUCTIVE PULMONARY DISEASE
     Dosage: 18 MCG
     Route: 055
     Dates: start: 201309
  2. ADVAIR [Concomitant]
     Indication: CHRONIC OBSTRUCTIVE PULMONARY DISEASE
     Dosage: (INHALATION AEROSOL) STRENGTH: 250 MCG/50 MCG; DAILY DOSE: 500MCG/100MCG
     Route: 055
     Dates: start: 2011
  3. VENTOLIN [Concomitant]
     Indication: INHALATION THERAPY
     Dosage: (INHALATION SOLUTION)
     Route: 055
     Dates: start: 1998
  4. COREG CR [Concomitant]
     Indication: HYPERTENSION
     Dosage: 20 MG
     Route: 048
     Dates: start: 201309
  5. BABY ASPIRIN [Concomitant]
     Indication: CORONARY ARTERY DISEASE
     Dosage: 81 MG
     Route: 048
     Dates: start: 1998

REACTIONS (4)
  - Dyspnoea [Not Recovered/Not Resolved]
  - Sinus congestion [Recovered/Resolved]
  - Pain [Recovered/Resolved]
  - Headache [Recovered/Resolved]
